FAERS Safety Report 23347546 (Version 1)
Quarter: 2023Q4

REPORT INFORMATION
  Report Type: Spontaneous
  Country: US (occurrence: US)
  Receive Date: 20231228
  Receipt Date: 20231228
  Transmission Date: 20240110
  Serious: Yes (Hospitalization, Other)
  Sender: FDA-Public Use
  Company Number: US-SPECGX-T202302408

PATIENT
  Age: 27 Year
  Sex: Female
  Weight: 91 kg

DRUGS (9)
  1. ACETAMINOPHEN\OXYCODONE HYDROCHLORIDE [Suspect]
     Active Substance: ACETAMINOPHEN\OXYCODONE HYDROCHLORIDE
     Indication: Product used for unknown indication
     Dosage: UNK
     Route: 065
  2. ACETAMINOPHEN\HYDROCODONE [Suspect]
     Active Substance: ACETAMINOPHEN\HYDROCODONE
     Indication: Product used for unknown indication
     Dosage: UNK
     Route: 065
  3. ACETAMINOPHEN\HYDROCODONE [Suspect]
     Active Substance: ACETAMINOPHEN\HYDROCODONE
     Indication: Pain
     Dosage: 1 DOSAGE FORM, PRN (EVERY 6 HOURS)
     Route: 048
     Dates: start: 201911
  4. ACETAMINOPHEN\HYDROCODONE [Suspect]
     Active Substance: ACETAMINOPHEN\HYDROCODONE
     Dosage: 1 DOSAGE FORM, PRN (EVERY 4 HOURS)
     Route: 048
     Dates: start: 201911
  5. METHADONE [Suspect]
     Active Substance: METHADONE HYDROCHLORIDE
     Indication: Drug dependence
     Dosage: UNK
     Route: 065
  6. OXYCONTIN [Suspect]
     Active Substance: OXYCODONE HYDROCHLORIDE
     Indication: Product used for unknown indication
     Dosage: UNK
     Route: 065
  7. TRAMADOL [Suspect]
     Active Substance: TRAMADOL\TRAMADOL HYDROCHLORIDE
     Indication: Product used for unknown indication
     Dosage: UNK
     Route: 065
  8. HEROIN [Suspect]
     Active Substance: DIAMORPHINE
     Indication: Product used for unknown indication
     Dosage: UNK
     Route: 042
  9. PROMETRIUM [Concomitant]
     Active Substance: PROGESTERONE
     Indication: Product used for unknown indication
     Dosage: 100 MILLIGRAM (EVERY EVENING)
     Route: 067

REACTIONS (26)
  - Breast abscess [Unknown]
  - Abscess limb [Recovering/Resolving]
  - Staphylococcal infection [Unknown]
  - Breast cellulitis [Unknown]
  - Streptococcal infection [Unknown]
  - Deep vein thrombosis [Unknown]
  - Premature delivery [Unknown]
  - Abscess drainage [Unknown]
  - Substance use disorder [Unknown]
  - Drug dependence [Unknown]
  - Chills [Unknown]
  - Swelling [Unknown]
  - Blood alkaline phosphatase increased [Unknown]
  - Mean cell haemoglobin decreased [Unknown]
  - Fatigue [Unknown]
  - Pyrexia [Unknown]
  - Malaise [Unknown]
  - Erythema [Unknown]
  - Rash [Unknown]
  - Aspartate aminotransferase increased [Unknown]
  - Tachycardia [Unknown]
  - Euphoric mood [Unknown]
  - Drug diversion [Unknown]
  - Loss of employment [Unknown]
  - Economic problem [Unknown]
  - Exposure during pregnancy [Unknown]

NARRATIVE: CASE EVENT DATE: 20180719
